FAERS Safety Report 13901282 (Version 2)
Quarter: 2019Q1

REPORT INFORMATION
  Report Type: Spontaneous
  Country: US (occurrence: US)
  Receive Date: 20170824
  Receipt Date: 20190126
  Transmission Date: 20190417
  Serious: No
  Sender: FDA-Public Use
  Company Number: GXBR2017US002188

PATIENT
  Sex: Male
  Weight: 77.98 kg

DRUGS (1)
  1. LATANOPROST. [Suspect]
     Active Substance: LATANOPROST
     Indication: GLAUCOMA
     Dosage: 1 DRP, QD (ONE DROP IN EACH EYE IN THE EVENING)
     Route: 047

REACTIONS (2)
  - Drug ineffective [Unknown]
  - Skin discolouration [Not Recovered/Not Resolved]
